FAERS Safety Report 5853542-6 (Version None)
Quarter: 2008Q3

REPORT INFORMATION
  Report Type: 
  Country: None (occurrence: None)
  Receive Date: 20080822
  Receipt Date: 20080818
  Transmission Date: 20090109
  Serious: Yes (Death, Hospitalization)
  Sender: FDA-Public Use
  Company Number: JP-JNJFOC-20080706526

PATIENT
  Sex: Male
  Weight: 55 kg

DRUGS (13)
  1. ITRIZOLE [Suspect]
     Indication: FEBRILE NEUTROPENIA
     Route: 041
  2. ITRIZOLE [Suspect]
     Indication: DRUG USE FOR UNKNOWN INDICATION
     Route: 048
  3. IDAMYCIN [Suspect]
     Indication: ACUTE MYELOID LEUKAEMIA
     Route: 042
  4. MEROPEN [Suspect]
     Indication: DRUG USE FOR UNKNOWN INDICATION
     Route: 041
  5. MAXIPIME [Concomitant]
     Route: 042
  6. NEUTROGIN [Concomitant]
     Route: 058
  7. NOVANTRONE [Concomitant]
     Indication: ACUTE MYELOID LEUKAEMIA
     Route: 042
  8. SOLU-MEDROL [Concomitant]
     Route: 042
  9. SOLU-MEDROL [Concomitant]
     Indication: ACUTE MYELOID LEUKAEMIA
     Route: 042
  10. MORPHINE HCL ELIXIR [Concomitant]
     Indication: CANCER PAIN
     Route: 042
  11. FAMOTIDINE [Concomitant]
     Indication: PROPHYLAXIS
     Route: 048
  12. LASIX [Concomitant]
     Route: 048
  13. GASMOTIN [Concomitant]
     Route: 048

REACTIONS (8)
  - ACUTE MYELOID LEUKAEMIA [None]
  - BLOOD CHLORIDE INCREASED [None]
  - BLOOD LACTATE DEHYDROGENASE INCREASED [None]
  - BLOOD POTASSIUM INCREASED [None]
  - BLOOD SODIUM INCREASED [None]
  - BLOOD UREA INCREASED [None]
  - GAMMA-GLUTAMYLTRANSFERASE INCREASED [None]
  - WHITE BLOOD CELL COUNT INCREASED [None]
